FAERS Safety Report 8317516 (Version 7)
Quarter: 2013Q4

REPORT INFORMATION
  Report Type: Spontaneous
  Country: JP (occurrence: JP)
  Receive Date: 20111231
  Receipt Date: 20131226
  Transmission Date: 20140711
  Serious: Yes (Hospitalization, Other)
  Sender: FDA-Public Use
  Company Number: PHHY2011JP111311

PATIENT
  Sex: Male
  Weight: .63 kg

DRUGS (6)
  1. CICLOSPORIN [Suspect]
     Dosage: 200 MG, MATERNAL DOSE
     Route: 064
  2. METHYLDOPA [Suspect]
     Dosage: 750 MG, PER DAY, MATERNAL DOSE
     Route: 064
  3. MAGNESIUM SULFATE [Suspect]
     Dosage: 1 G, PER HOUR, MATERNAL DOSE
     Route: 064
  4. BETAMETHASONE [Suspect]
     Dosage: 12 MG, BID, MATERNAL DOSE
     Route: 064
  5. HYDRALAZINE [Suspect]
     Dosage: 6 MG, MATERNAL DOSE
     Route: 064
  6. PREDNISOLONE [Concomitant]
     Route: 064

REACTIONS (8)
  - Foetal distress syndrome [Unknown]
  - Respiratory disorder neonatal [Unknown]
  - Low birth weight baby [Recovering/Resolving]
  - Premature baby [Unknown]
  - Foetal growth restriction [Unknown]
  - Developmental delay [Unknown]
  - Foetal disorder [Recovered/Resolved]
  - Foetal exposure during pregnancy [Unknown]
